FAERS Safety Report 20068711 (Version 4)
Quarter: 2022Q1

REPORT INFORMATION
  Report Type: Spontaneous
  Country: US (occurrence: None)
  Receive Date: 20211115
  Receipt Date: 20220118
  Transmission Date: 20220424
  Serious: Yes (Death, Life-Threatening, Disabling, Other)
  Sender: FDA-Public Use
  Company Number: US-FRESENIUS KABI-FK202112293

PATIENT
  Age: 60 Year
  Sex: Female
  Weight: 110 kg

DRUGS (55)
  1. FLUDARABINE [Suspect]
     Active Substance: FLUDARABINE PHOSPHATE
     Indication: Plasma cell myeloma
     Dosage: 68 MG, 1 IN 1 D
     Route: 042
     Dates: start: 20210821, end: 20210821
  2. FLUDARABINE [Suspect]
     Active Substance: FLUDARABINE PHOSPHATE
     Dosage: 68 MG, 1 IN 1 D
     Route: 042
     Dates: start: 20210822, end: 20210822
  3. FLUDARABINE [Suspect]
     Active Substance: FLUDARABINE PHOSPHATE
     Dosage: 68 MG, 1 IN 1 D
     Route: 042
     Dates: start: 20210823, end: 20210823
  4. CYCLOPHOSPHAMIDE [Suspect]
     Active Substance: CYCLOPHOSPHAMIDE
     Indication: Plasma cell myeloma
     Dosage: 650 MG, 1 IN 1 DAY
     Route: 042
     Dates: start: 20210821, end: 20210821
  5. CYCLOPHOSPHAMIDE [Suspect]
     Active Substance: CYCLOPHOSPHAMIDE
     Dosage: 650 MG, 1 IN 1 DAY
     Route: 042
     Dates: start: 20210822, end: 20210822
  6. CYCLOPHOSPHAMIDE [Suspect]
     Active Substance: CYCLOPHOSPHAMIDE
     Dosage: 650 MG, 1 IN 1 DAY
     Route: 042
     Dates: start: 20210823, end: 20210823
  7. ALBUTEROL [Concomitant]
     Active Substance: ALBUTEROL
     Indication: Asthma
     Dosage: 90 INHALATION X 1 X 6 HOUR, 1IN 6 HR, INH?ONGOING
     Dates: start: 2015
  8. CETIRIZINE HYDROCHLORIDE [Concomitant]
     Active Substance: CETIRIZINE HYDROCHLORIDE
     Indication: Rhinitis allergic
     Dosage: 10 MG X 1 X 1 DAY, 1 IN 1 D, PO?ONGOING
     Route: 048
     Dates: start: 2015
  9. METHYLPREDNISOLONE [Concomitant]
     Active Substance: METHYLPREDNISOLONE
     Indication: Plasma cell myeloma
     Dosage: 1 G, NOT PROVIDED, UNK
     Route: 065
     Dates: start: 20210809, end: 20210813
  10. ACETAMINOPHEN [Concomitant]
     Active Substance: ACETAMINOPHEN
     Indication: Prophylaxis
     Dosage: 650 MG X ONCE, ONCE, PO
     Route: 048
     Dates: start: 20210826, end: 20210826
  11. ACYCLOVIR [Concomitant]
     Active Substance: ACYCLOVIR
     Indication: Prophylaxis
     Dosage: 400 MG X 2 X 1 DAYS, 2 IN 1 D, PO?ONGOING
     Route: 048
     Dates: start: 20160428
  12. ACYCLOVIR [Concomitant]
     Active Substance: ACYCLOVIR
     Dosage: 300 MG X 4 X 1 DAYS, 4 IN 1 D, INTRAVENOUS (NOT OTHERWISE SPECIFIED)?ONGOING
     Route: 042
     Dates: start: 20210911
  13. ALTEPLASE [Concomitant]
     Active Substance: ALTEPLASE
     Indication: Catheter management
     Dosage: 2 MG X ONCE, ONCE, INTRAVENOUS (NOT OTHERWISE SPECIFIED)
     Route: 042
     Dates: start: 20210830, end: 20210830
  14. XIPAMIDE [Concomitant]
     Active Substance: XIPAMIDE
     Indication: Rash maculo-papular
     Dosage: 1 APPLICATION X 1 X 4 DAYS, 1 IN 4 D, TOP?ONGOING
     Route: 061
     Dates: start: 20210828
  15. ASPIRIN [Concomitant]
     Active Substance: ASPIRIN
     Indication: Prophylaxis
     Dosage: 81 MG X 1 X 1, 1 IN 1D , PO?ONGOING
     Route: 048
     Dates: start: 20160215
  16. ATOVAQUONE [Concomitant]
     Active Substance: ATOVAQUONE
     Indication: Prophylaxis
     Dosage: 1500 MG X 1 X 1 DAYS, 1 IN 1 D, PO?ONGOING
     Route: 048
     Dates: start: 20210928
  17. MENTHOL/BENZOCAINE [Concomitant]
     Indication: Oropharyngeal pain
     Dosage: 1 LOZENGE X PRN, PRN, PO?ONGOING
     Route: 048
     Dates: start: 20210827
  18. CALCIUM GLUCONATE [Concomitant]
     Active Substance: CALCIUM GLUCONATE
     Indication: Prophylaxis
     Dosage: 2 G X PRN, PRN, INTRAVENOUS (NOT OTHERWISE SPECIFIED)?ONGOING
     Route: 042
     Dates: start: 20210830, end: 20210922
  19. CYCLOBENZAPRINE [Concomitant]
     Active Substance: CYCLOBENZAPRINE
     Indication: Arthralgia
     Dosage: MG X 3 X 1 DAYS, 3 IN 1 D, PO?ONGOING
     Route: 048
     Dates: start: 20210315
  20. DICLOFENAC [Concomitant]
     Active Substance: DICLOFENAC
     Indication: Osteoarthritis
     Dosage: 4 G X 1 X 6 HOURS, 1 IN 6 HR, TOP
     Route: 061
     Dates: start: 20210818, end: 20210827
  21. FENTANYL [Concomitant]
     Active Substance: FENTANYL
     Indication: Osteoarthritis
     Dosage: 1 PATCH X 1 X 3 DAYS, 1 IN 3 D TOP?PATCH ER
     Route: 061
     Dates: start: 20210828, end: 20210905
  22. FUROSEMIDE [Concomitant]
     Active Substance: FUROSEMIDE
     Indication: Prophylaxis
     Dosage: 20 MG X PRN, PRN, INTRAVENOUS (NOT OTHERWISE SPECIFIED)?ONGOING
     Route: 042
     Dates: start: 20210821
  23. HYDRALAZINE [Concomitant]
     Active Substance: HYDRALAZINE HYDROCHLORIDE
     Indication: Hypertension
     Dosage: 10 MG X PRN, PRN, INTRAVENOUS (NOT OTHERWISE SPECIFIED)?ONGOING
     Route: 042
     Dates: start: 20210920
  24. LACTASE [Concomitant]
     Active Substance: LACTASE
     Indication: Gastrooesophageal reflux disease
     Dosage: 3000 ENZYME U X PRN, PRN, PO?ONGOING
     Route: 048
     Dates: start: 20210927
  25. LACTOBACILLUS ACIDOPHILUS [Concomitant]
     Active Substance: LACTOBACILLUS ACIDOPHILUS
     Indication: Prophylaxis
     Dosage: 1 PACKET X 3 X 1 DAYS, 3 IN 1 D, PO?ONGOING
     Route: 048
     Dates: start: 20210922
  26. LEVOFLOXACIN [Concomitant]
     Active Substance: LEVOFLOXACIN
     Indication: Prophylaxis
     Dosage: 500 MG X 1 X 1 DAYS, 1 IN 1 D, PO
     Route: 048
     Dates: start: 20210323, end: 20210830
  27. FAMOTIDINE [Concomitant]
     Active Substance: FAMOTIDINE
     Indication: Gastrooesophageal reflux disease
     Dosage: 20 MG X 2 X 1 DAYS, 2 IN 1 D, PO?ONGOING
     Route: 048
     Dates: start: 20200113
  28. LEVETIRACETAM [Concomitant]
     Active Substance: LEVETIRACETAM
     Indication: Prophylaxis
     Dosage: 500 MG X PRN, PRN, PO?ONGOING
     Route: 048
     Dates: start: 20210902
  29. ENOXAPARIN SODIUM [Concomitant]
     Active Substance: ENOXAPARIN SODIUM
     Indication: Prophylaxis
     Dosage: 40 MG X 1 X 1 DAYS, 1 IN 1 D, SC
     Route: 058
     Dates: start: 20210818, end: 20210901
  30. MAGNESIUM SULFATE [Concomitant]
     Active Substance: MAGNESIUM SULFATE
     Indication: Hypomagnesaemia
     Dosage: 2 G X PRN, PRN, INTRAVENOUS (NOT OTHERWISE SPECIFIED)?ONGOING?MAGNESIUM SULFATE PIGGYBACK
     Route: 042
     Dates: start: 20210817
  31. MONTELUKAST [Concomitant]
     Active Substance: MONTELUKAST SODIUM
     Indication: Rhinitis allergic
     Dosage: 10 MG X 1 X 1 DAYS, 1 IN 1 D, PO?ONGOING
     Route: 048
     Dates: start: 20150507
  32. MONTELUKAST SODIUM [Concomitant]
     Active Substance: MONTELUKAST SODIUM
     Indication: Asthma
     Dosage: 10 MG X 1 X 1 DAYS, 1 IN 1 D, PO?ONGOING
     Route: 048
     Dates: start: 20210817
  33. OXYCODONE [Concomitant]
     Active Substance: OXYCODONE
     Indication: Pain
     Dosage: 5 MG X PRN, PRN, PO?ONGOING?(7-10 ON PAIN ASSESSMENT)
     Route: 048
     Dates: start: 20210829
  34. ONDANSETRON [Concomitant]
     Active Substance: ONDANSETRON
     Indication: Prophylaxis
     Dosage: 8 MG X 1 X 6 HOUR, 1 IN 6 HR, INTRAVENOUS (NOT OTHERWISE SPECIFIED)
     Route: 042
     Dates: start: 20210821, end: 20210824
  35. ONDANSETRON [Concomitant]
     Active Substance: ONDANSETRON
     Indication: Adverse event
     Dosage: 8 MG X PRN, PRN, INTRAVENOUS (NOT OTHERWISE SPECIFIED)?ONGOING
     Route: 042
     Dates: start: 20210911
  36. PERMETHRIN [Concomitant]
     Active Substance: PERMETHRIN
     Indication: Rash maculo-papular
     Dosage: TOPICAL CREAM APPLIED TO WHOLE BODY, NECK DOWN APPLICATION X 1 X 2 WEEKS, 1 IN 2 WK, TOP
     Route: 061
     Dates: start: 20210728, end: 20210812
  37. POSACONAZOLE [Concomitant]
     Active Substance: POSACONAZOLE
     Indication: Prophylaxis
     Dosage: 300MG, 2 X 1 DAYS, 2 IN 1 D, PO?ONGOING
     Route: 048
     Dates: start: 20210828
  38. PROCHLORPERAZINE [Concomitant]
     Active Substance: PROCHLORPERAZINE
     Indication: Prophylaxis
     Dosage: 10MG, 1 X 6 HOUR, 1 IN 6 HR, PO?ONGOING
     Route: 048
     Dates: start: 20210325
  39. SENNOSIDES A AND B [Concomitant]
     Active Substance: SENNOSIDES A AND B
     Indication: Prophylaxis
     Dosage: 1 TABLET X PRN, PRN, PO?ONGOING
     Route: 048
     Dates: start: 20210906
  40. SIMETHICONE (DIMETHICONE) [Concomitant]
     Active Substance: DIMETHICONE
     Indication: Gastrooesophageal reflux disease
     Dosage: 80 MG X PRN, PRN, PO?ONGOING
     Route: 048
     Dates: start: 20210918
  41. SODIUM FLUORIDE [Concomitant]
     Active Substance: SODIUM FLUORIDE
     Indication: Dental disorder prophylaxis
     Dosage: 1 APPLICATION X 3 X 1 DAYS, 3 IN 1 D, TOP?ONGOING?SODIUM FLUORIDE 5000 PLUS 1.1 PERCENT
     Route: 061
     Dates: start: 20210706
  42. SULFAMETHOXAZOLE\TRIMETHOPRIM [Concomitant]
     Active Substance: SULFAMETHOXAZOLE\TRIMETHOPRIM
     Indication: Prophylaxis
     Dosage: 1 TABLET X PRN, PRN, PO?ONGOING
     Route: 048
     Dates: start: 20210818, end: 20210820
  43. TRAMADOL [Concomitant]
     Active Substance: TRAMADOL
     Indication: Arthralgia
     Dosage: 50 MG X 1 X 6 HOURS, 1 IN 6 HR, PO?ONGOING
     Route: 048
     Dates: start: 20210628
  44. TRAMADOL [Concomitant]
     Active Substance: TRAMADOL
     Indication: Sacroiliitis
  45. CALCIUM CARBONATE [Concomitant]
     Active Substance: CALCIUM CARBONATE
     Indication: Gastrooesophageal reflux disease
     Dosage: 2 TABLET X PRN, PRN, PO?ONGOING
     Route: 048
     Dates: start: 20210906
  46. URSODIOL [Concomitant]
     Active Substance: URSODIOL
     Indication: Obesity
     Dosage: 300MG, 3 X 1 DAYS, 3 IN 1 D, PO?ONGOING
     Route: 048
     Dates: start: 20210821
  47. CHOLECALCIFEROL [Concomitant]
     Active Substance: CHOLECALCIFEROL
     Indication: Prophylaxis
     Dosage: 50 UL X 3 X 1 DAYS, 3 IN 1 D, PO?ONGOING
     Route: 048
     Dates: start: 20160711
  48. ZOLPIDEM [Concomitant]
     Active Substance: ZOLPIDEM TARTRATE
     Indication: Sleep apnoea syndrome
     Dosage: 5 MG, 1 X 1 DAYS, 1 IN 1 D, PO?ONGOING
     Route: 048
     Dates: start: 20200113
  49. DILTIAZEM [Concomitant]
     Active Substance: DILTIAZEM
     Indication: Atrial fibrillation
     Route: 065
     Dates: start: 20210816, end: 20210818
  50. POTASSIUM CHLORIDE [Concomitant]
     Active Substance: POTASSIUM CHLORIDE
     Indication: Hypokalaemia
     Dosage: ONGOING
     Route: 065
     Dates: start: 20210816
  51. LIDOCAINE [Concomitant]
     Active Substance: LIDOCAINE
     Indication: Sacroiliitis
     Route: 065
  52. MORPHINE [Concomitant]
     Active Substance: MORPHINE
     Indication: Sacroiliitis
     Route: 065
  53. POTASSIUM PHOSPHATE, DIBASIC [Concomitant]
     Active Substance: POTASSIUM PHOSPHATE, DIBASIC
     Indication: Hypophosphataemia
     Route: 065
     Dates: start: 20210816
  54. SODIUM CHLORIDE [Concomitant]
     Active Substance: SODIUM CHLORIDE
     Indication: Hyponatraemia
     Route: 065
     Dates: start: 20210831, end: 20210901
  55. SODIUM PHOSPHATE [Concomitant]
     Active Substance: SODIUM PHOSPHATE
     Indication: Hypophosphataemia
     Route: 065
     Dates: start: 20210817, end: 20211003

REACTIONS (6)
  - Cytokine release syndrome [Recovered/Resolved]
  - Haemophagocytic lymphohistiocytosis [Recovered/Resolved]
  - Subdural haematoma [Unknown]
  - Cardiac failure [Fatal]
  - Tumour lysis syndrome [Recovered/Resolved]
  - Neurotoxicity [Recovered/Resolved]

NARRATIVE: CASE EVENT DATE: 20210831
